FAERS Safety Report 6154445-2 (Version None)
Quarter: 2009Q2

REPORT INFORMATION
  Report Type: 
  Country: None (occurrence: None)
  Receive Date: 20090414
  Receipt Date: 20090402
  Transmission Date: 20091009
  Serious: Yes (Other)
  Sender: FDA-Public Use
  Company Number: DE-WYE-H08071009

PATIENT
  Sex: Female

DRUGS (3)
  1. PANTOPRAZOLE SODIUM [Suspect]
     Indication: HELICOBACTER GASTRITIS
     Route: 048
     Dates: start: 20070420, end: 20070425
  2. AMOXICILLIN TRIHYDRATE [Suspect]
     Indication: HELICOBACTER GASTRITIS
     Route: 048
     Dates: start: 20070420, end: 20070425
  3. CLARITHROMYCIN [Suspect]
     Indication: HELICOBACTER GASTRITIS
     Route: 048
     Dates: start: 20070420, end: 20070425

REACTIONS (6)
  - ASTHENIA [None]
  - DEPRESSION [None]
  - GENERAL PHYSICAL CONDITION ABNORMAL [None]
  - PANIC ATTACK [None]
  - SUICIDAL IDEATION [None]
  - TREMOR [None]
